FAERS Safety Report 13043219 (Version 1)
Quarter: 2016Q4

REPORT INFORMATION
  Report Type: Spontaneous
  Country: US (occurrence: US)
  Receive Date: 20161219
  Receipt Date: 20161219
  Transmission Date: 20170207
  Serious: Yes (Life-Threatening, Hospitalization, Other)
  Sender: FDA-Public Use
  Company Number: PHHY2016US169016

PATIENT
  Age: 81 Year
  Sex: Female

DRUGS (2)
  1. AMIODARONE [Suspect]
     Active Substance: AMIODARONE
     Indication: ATRIAL FIBRILLATION
     Route: 065
  2. TICAGRELOR [Suspect]
     Active Substance: TICAGRELOR
     Indication: ATRIAL FIBRILLATION
     Route: 065

REACTIONS (1)
  - Alveolar proteinosis [Unknown]
